FAERS Safety Report 7508742-6 (Version None)
Quarter: 2011Q2

REPORT INFORMATION
  Report Type: 
  Country: None (occurrence: None)
  Receive Date: 20110527
  Receipt Date: 20101122
  Transmission Date: 20111010
  Serious: No
  Sender: FDA-Public Use
  Company Number: A0894508A

PATIENT
  Age: 58 Year
  Sex: Male

DRUGS (10)
  1. ZOLOFT [Concomitant]
  2. EMBEDA [Concomitant]
  3. LYRICA [Concomitant]
  4. ZOCOR [Concomitant]
  5. BUSPAR [Concomitant]
  6. PRILOSEC [Concomitant]
  7. REGLAN [Concomitant]
  8. VENTOLIN [Suspect]
     Indication: PNEUMONIA
     Dosage: 2PUFF THREE TIMES PER DAY
     Route: 055
     Dates: start: 20100801
  9. UNSPECIFIED DRUG [Concomitant]
  10. LUNESTA [Concomitant]

REACTIONS (1)
  - DRUG INEFFECTIVE [None]
